FAERS Safety Report 20417220 (Version 3)
Quarter: 2022Q1

REPORT INFORMATION
  Report Type: Spontaneous
  Country: US (occurrence: None)
  Receive Date: 20220202
  Receipt Date: 20220317
  Transmission Date: 20220423
  Serious: No
  Sender: FDA-Public Use
  Company Number: 2022A025496

PATIENT
  Sex: Female
  Weight: 101.2 kg

DRUGS (1)
  1. SYMBICORT [Suspect]
     Active Substance: BUDESONIDE\FORMOTEROL FUMARATE DIHYDRATE
     Indication: Chronic obstructive pulmonary disease
     Dosage: 160/4.5 UG, UNKNOWN FREQUENCY UNKNOWN
     Route: 055
     Dates: start: 20211221

REACTIONS (4)
  - Dysphonia [Unknown]
  - Device use issue [Unknown]
  - Device ineffective [Unknown]
  - Device malfunction [Unknown]
